FAERS Safety Report 5390822-5 (Version None)
Quarter: 2007Q3

REPORT INFORMATION
  Report Type: 
  Country: None (occurrence: None)
  Receive Date: 20070716
  Receipt Date: 20070628
  Transmission Date: 20080115
  Serious: Yes (Life-Threatening, Hospitalization)
  Sender: FDA-Public Use
  Company Number: DSA_29841_2007

PATIENT
  Sex: Female

DRUGS (5)
  1. TAVOR /00273201/ (TAVOR) 1 MG (BIOVAIL) [Suspect]
     Dosage: 40 MG 1 X ORAL
     Route: 048
     Dates: start: 20070426, end: 20070426
  2. VENLAFAXINE HCL [Suspect]
     Dosage: 7500 MG 1X ORAL
     Route: 048
     Dates: start: 20070426, end: 20070426
  3. RISPERDAL [Suspect]
     Dosage: 80 MG 1X ORAL
     Route: 048
     Dates: start: 20070426, end: 20070426
  4. ZOPICLONE (ZOPICLONE) 7.5 MG [Suspect]
     Dosage: 150 MG 1X ORAL
     Route: 048
     Dates: start: 20070426, end: 20070426
  5. ETHANOL (ALCOHOL) [Suspect]

REACTIONS (6)
  - BLOOD GLUCOSE DECREASED [None]
  - HYPOKALAEMIA [None]
  - HYPOTENSION [None]
  - MULTIPLE DRUG OVERDOSE INTENTIONAL [None]
  - SOMNOLENCE [None]
  - SUICIDE ATTEMPT [None]
